FAERS Safety Report 17839454 (Version 1)
Quarter: 2020Q2

REPORT INFORMATION
  Report Type: Spontaneous
  Country: JP (occurrence: JP)
  Receive Date: 20200529
  Receipt Date: 20200529
  Transmission Date: 20200714
  Serious: Yes (Other)
  Sender: FDA-Public Use
  Company Number: JP-PFIZER INC-2020209080

PATIENT
  Age: 12 Year
  Sex: Female

DRUGS (8)
  1. CYCLOPHOSPHAMIDE. [Suspect]
     Active Substance: CYCLOPHOSPHAMIDE
     Indication: HODGKIN^S DISEASE
     Dosage: UNK (ADDITIONAL 2 COURSES OF COPP REGIMEN)
  2. DOXORUBICIN HCL [Suspect]
     Active Substance: DOXORUBICIN HYDROCHLORIDE
     Indication: HODGKIN^S DISEASE
     Dosage: UNK (2 COURSES OF OPPA REGIMEN)
  3. VINCRISTINE [Suspect]
     Active Substance: VINCRISTINE
     Dosage: UNK (ADDITIONAL 2 COURSES OF COPP REGIMEN)
  4. PROCARBAZINE [Suspect]
     Active Substance: PROCARBAZINE
     Indication: HODGKIN^S DISEASE
     Dosage: UNK (2 COURSES OF OPPA REGIMEN)
  5. PROCARBAZINE [Suspect]
     Active Substance: PROCARBAZINE
     Dosage: UNK (ADDITIONAL 2 COURSES OF COPP REGIMEN)
  6. PREDNISONE. [Suspect]
     Active Substance: PREDNISONE
     Indication: HODGKIN^S DISEASE
     Dosage: UNK (2 COURSES OF OPPA REGIMEN)
  7. PREDNISONE. [Suspect]
     Active Substance: PREDNISONE
     Dosage: UNK (ADDITIONAL 2 COURSES OF COPP REGIMEN)
  8. VINCRISTINE [Suspect]
     Active Substance: VINCRISTINE
     Indication: HODGKIN^S DISEASE
     Dosage: UNK (2 COURSES OF OPPA REGIMEN)

REACTIONS (1)
  - Hyperthyroidism [Unknown]
